FAERS Safety Report 4821717-0 (Version None)
Quarter: 2005Q4

REPORT INFORMATION
  Report Type: 
  Country: None (occurrence: None)
  Receive Date: 20051103
  Receipt Date: 20051013
  Transmission Date: 20060501
  Serious: Yes (Other)
  Sender: FDA-Public Use
  Company Number: USA0510110189

PATIENT
  Age: 68 Year
  Sex: Female

DRUGS (6)
  1. EVISTA [Suspect]
     Dosage: 60 MG
     Dates: start: 20000101
  2. DIAZIDE(GLICLAZIDE) [Concomitant]
  3. CORGARD [Concomitant]
  4. ZOLOFT [Concomitant]
  5. SERAX [Concomitant]
  6. ESTROGEN NOS [Concomitant]

REACTIONS (3)
  - ENDOMETRIAL CANCER [None]
  - METASTASES TO FALLOPIAN TUBE [None]
  - METASTASES TO LYMPH NODES [None]
